FAERS Safety Report 4905383-1 (Version None)
Quarter: 2006Q1

REPORT INFORMATION
  Report Type: 
  Country: None (occurrence: None)
  Receive Date: 20060203
  Receipt Date: 20060124
  Transmission Date: 20060701
  Serious: Yes (Hospitalization)
  Sender: FDA-Public Use
  Company Number: 2005JP001750

PATIENT
  Age: 26 Year
  Sex: Male

DRUGS (6)
  1. PROGRAF [Suspect]
     Indication: RENAL TRANSPLANT
  2. STEROID [Suspect]
     Indication: KIDNEY TRANSPLANT REJECTION
     Dates: start: 20030411
  3. VANCOMYCIN [Suspect]
     Indication: CLOSTRIDIUM COLITIS
     Dates: start: 20030101
  4. MEDROL [Concomitant]
  5. CELLCEPT [Concomitant]
  6. SHIOMARIN (LATAMOXEF) [Concomitant]

REACTIONS (13)
  - BIOPSY KIDNEY ABNORMAL [None]
  - BLOOD CREATININE INCREASED [None]
  - CLOSTRIDIUM COLITIS [None]
  - COMPLICATIONS OF TRANSPLANT SURGERY [None]
  - DIABETES MELLITUS [None]
  - DUODENAL ULCER [None]
  - HEPATIC FUNCTION ABNORMAL [None]
  - KIDNEY TRANSPLANT REJECTION [None]
  - OESOPHAGEAL CANDIDIASIS [None]
  - PROTEIN URINE [None]
  - PYREXIA [None]
  - URINARY RETENTION [None]
  - URINARY TRACT INFECTION [None]
